FAERS Safety Report 21033197 (Version 2)
Quarter: 2022Q3

REPORT INFORMATION
  Report Type: Report from Study
  Country: FR (occurrence: None)
  Receive Date: 20220701
  Receipt Date: 20220801
  Transmission Date: 20221027
  Serious: Yes (Death, Hospitalization)
  Sender: FDA-Public Use
  Company Number: 2022A235186

PATIENT
  Age: 31183 Day
  Sex: Male
  Weight: 70 kg

DRUGS (2)
  1. EVUSHELD [Suspect]
     Active Substance: CILGAVIMAB\TIXAGEVIMAB
     Indication: COVID-19 prophylaxis
     Dosage: TIXAGEVIMAB 150 MG/CILGAVIMAB 150 MG
     Route: 030
     Dates: start: 20220110, end: 20220110
  2. IMMUNOSUPPRESSIVE TREATMENT WITH RITUXIMAB [Concomitant]

REACTIONS (2)
  - Malignant neoplasm progression [Fatal]
  - Corynebacterium bacteraemia [Fatal]

NARRATIVE: CASE EVENT DATE: 20220525
